FAERS Safety Report 5448821-0 (Version None)
Quarter: 2007Q3

REPORT INFORMATION
  Report Type: 
  Country: None (occurrence: None)
  Receive Date: 20070911
  Receipt Date: 20070629
  Transmission Date: 20080115
  Serious: No
  Sender: FDA-Public Use
  Company Number: US-BRISTOL-MYERS SQUIBB COMPANY-13831268

PATIENT
  Age: 53 Year
  Sex: Male
  Weight: 136 kg

DRUGS (2)
  1. EMSAM [Suspect]
     Dosage: DOSAGE INCREASED THREE MONTHS AGO/THEN ITCHING BEGAN
     Dates: start: 20060901
  2. LIPITOR [Concomitant]

REACTIONS (2)
  - ERYTHEMA [None]
  - PRURITUS [None]
